FAERS Safety Report 6645078-X (Version None)
Quarter: 2010Q1

REPORT INFORMATION
  Report Type: 
  Country: None (occurrence: None)
  Receive Date: 20100319
  Receipt Date: 20100319
  Transmission Date: 20100710
  Serious: Yes (Other)
  Sender: FDA-Public Use
  Company Number: None

PATIENT
  Age: 34 Year
  Sex: Male
  Weight: 106.5953 kg

DRUGS (4)
  1. REMICADE [Suspect]
     Indication: RHEUMATOID ARTHRITIS
     Dosage: 4 VIALS LOADING DOSE
     Dates: start: 20080701, end: 20090201
  2. REMICADE [Suspect]
     Indication: SPONDYLOARTHROPATHY
     Dosage: 4 VIALS LOADING DOSE
     Dates: start: 20080701, end: 20090201
  3. REMICADE [Suspect]
     Indication: RHEUMATOID ARTHRITIS
     Dosage: 4 VIALS LOADING DOSE
     Dates: start: 20100201, end: 20100301
  4. REMICADE [Suspect]
     Indication: SPONDYLOARTHROPATHY
     Dosage: 4 VIALS LOADING DOSE
     Dates: start: 20100201, end: 20100301

REACTIONS (5)
  - BACK PAIN [None]
  - CONVULSION [None]
  - DRUG INEFFECTIVE [None]
  - INFUSION RELATED REACTION [None]
  - URTICARIA [None]
